FAERS Safety Report 14186875 (Version 2)
Quarter: 2017Q4

REPORT INFORMATION
  Report Type: Spontaneous
  Country: US (occurrence: US)
  Receive Date: 20171114
  Receipt Date: 20171120
  Transmission Date: 20180321
  Serious: No
  Sender: FDA-Public Use
  Company Number: US-ASTRAZENECA-2017SF14102

PATIENT
  Sex: Female
  Weight: 80.7 kg

DRUGS (2)
  1. BYDUREON [Suspect]
     Active Substance: EXENATIDE
     Indication: DIABETES MELLITUS
     Route: 058
  2. BYETTA [Concomitant]
     Active Substance: EXENATIDE
     Indication: BLOOD GLUCOSE ABNORMAL
     Dosage: TWO TIMES A DAY
     Route: 058

REACTIONS (3)
  - Device malfunction [Unknown]
  - Arthritis [Unknown]
  - Wrong technique in product usage process [Unknown]
